FAERS Safety Report 14969105 (Version 1)
Quarter: 2018Q2

REPORT INFORMATION
  Report Type: Report from Study
  Country: TW (occurrence: TW)
  Receive Date: 20180604
  Receipt Date: 20180604
  Transmission Date: 20180711
  Serious: Yes (Hospitalization)
  Sender: FDA-Public Use
  Company Number: TW-ELI_LILLY_AND_COMPANY-TW201805014159

PATIENT
  Age: 48 Year
  Sex: Male
  Weight: 68 kg

DRUGS (2)
  1. CETUXIMAB. [Suspect]
     Active Substance: CETUXIMAB
     Indication: NASAL CAVITY CANCER
     Dosage: 250 MG/M2, WEEKLY (1/W)
     Route: 041
     Dates: start: 20180410
  2. NIVOLUMAB [Concomitant]
     Active Substance: NIVOLUMAB
     Indication: NASAL CAVITY CANCER
     Dosage: 200 MG, ONCE IN TWO WEEKS
     Route: 041

REACTIONS (2)
  - Mouth haemorrhage [Recovered/Resolved]
  - Off label use [Unknown]

NARRATIVE: CASE EVENT DATE: 20180521
